FAERS Safety Report 7807640-8 (Version None)
Quarter: 2011Q4

REPORT INFORMATION
  Report Type: 
  Country: None (occurrence: None)
  Receive Date: 20111011
  Receipt Date: 20110929
  Transmission Date: 20120403
  Serious: Yes (Death)
  Sender: FDA-Public Use
  Company Number: FR-UCBSA-032231

PATIENT
  Age: 55 Year
  Sex: Male

DRUGS (9)
  1. VIMPAT [Suspect]
     Dosage: 70 TABLETS
     Route: 048
     Dates: start: 20110401, end: 20110401
  2. LERCANIDIPINE [Concomitant]
     Route: 048
     Dates: end: 20110401
  3. VIMPAT [Suspect]
     Dosage: 70 TABLETS
     Route: 048
     Dates: start: 20110401, end: 20110401
  4. NICARDIPINE HCL [Suspect]
     Indication: POISONING
     Route: 048
     Dates: end: 20110401
  5. VIMPAT [Suspect]
     Indication: EPILEPSY
     Route: 048
  6. PHENOBARBITAL TAB [Concomitant]
     Indication: EPILEPSY
     Route: 048
     Dates: end: 20110401
  7. VIMPAT [Suspect]
     Indication: POISONING
     Route: 048
  8. NEURONTIN [Concomitant]
     Indication: EPILEPSY
     Route: 048
     Dates: end: 20110401
  9. LAMICTAL [Concomitant]
     Indication: EPILEPSY
     Route: 048
     Dates: end: 20110401

REACTIONS (2)
  - INTENTIONAL OVERDOSE [None]
  - CARDIAC ARREST [None]
